FAERS Safety Report 17081728 (Version 2)
Quarter: 2020Q2

REPORT INFORMATION
  Report Type: Spontaneous
  Country: US (occurrence: US)
  Receive Date: 20191127
  Receipt Date: 20200526
  Transmission Date: 20200713
  Serious: No
  Sender: FDA-Public Use
  Company Number: US-UCBSA-2018055203

PATIENT
  Age: 39 Year
  Sex: Female

DRUGS (1)
  1. CIMZIA [Suspect]
     Active Substance: CERTOLIZUMAB PEGOL
     Indication: ANKYLOSING SPONDYLITIS
     Dosage: 400 MG, EV 4 WEEKS
     Route: 058
     Dates: start: 20181206

REACTIONS (7)
  - Sinusitis [Unknown]
  - Injection site bruising [Recovered/Resolved]
  - Injection site discolouration [Recovered/Resolved]
  - Injection site swelling [Recovered/Resolved]
  - Neck pain [Not Recovered/Not Resolved]
  - Fatigue [Not Recovered/Not Resolved]
  - Spinal pain [Not Recovered/Not Resolved]

NARRATIVE: CASE EVENT DATE: 201812
